FAERS Safety Report 9233490 (Version 1)
Quarter: 2013Q2

REPORT INFORMATION
  Report Type: Spontaneous
  Country: GB (occurrence: GB)
  Receive Date: 20130416
  Receipt Date: 20130416
  Transmission Date: 20140414
  Serious: Yes (Other)
  Sender: FDA-Public Use
  Company Number: GB-BRISTOL-MYERS SQUIBB COMPANY-18777912

PATIENT
  Age: 86 Year
  Sex: Female

DRUGS (3)
  1. METFORMIN HCL TABS 500MG [Suspect]
     Indication: DIABETES MELLITUS
     Dosage: 1DF: 2 TABLETS?THERAPY ONGOIN FROM 5YEARS.
  2. FELODIPINE [Concomitant]
  3. SITAGLIPTIN PHOSPHATE [Concomitant]

REACTIONS (4)
  - Weight decreased [Not Recovered/Not Resolved]
  - Skin irritation [Not Recovered/Not Resolved]
  - Rash [Not Recovered/Not Resolved]
  - Pruritus [Not Recovered/Not Resolved]
